FAERS Safety Report 24735751 (Version 2)
Quarter: 2024Q4

REPORT INFORMATION
  Report Type: Report from Study
  Country: FR (occurrence: FR)
  Receive Date: 20241216
  Receipt Date: 20241219
  Transmission Date: 20250115
  Serious: Yes (Other)
  Sender: ABBVIE
  Company Number: FR-ABBVIE-6042527

PATIENT
  Age: 44 Year
  Sex: Female

DRUGS (2)
  1. DUOPA [Suspect]
     Active Substance: CARBIDOPA\LEVODOPA
     Indication: Product used for unknown indication
     Dosage: 2.8ML/H 4H-20H30
     Route: 050
     Dates: start: 20240725
  2. DUOPA [Suspect]
     Active Substance: CARBIDOPA\LEVODOPA

REACTIONS (5)
  - Suicidal ideation [Recovered/Resolved]
  - Dyskinesia [Not Recovered/Not Resolved]
  - Insomnia [Not Recovered/Not Resolved]
  - On and off phenomenon [Unknown]
  - Malaise [Unknown]

NARRATIVE: CASE EVENT DATE: 20241210
